FAERS Safety Report 5626337-6 (Version None)
Quarter: 2008Q1

REPORT INFORMATION
  Report Type: 
  Country: None (occurrence: None)
  Receive Date: 20080212
  Receipt Date: 20080212
  Transmission Date: 20080703
  Serious: No
  Sender: FDA-Public Use
  Company Number: None

PATIENT
  Sex: Female

DRUGS (2)
  1. ZOFRAN [Suspect]
     Indication: CEREBROVASCULAR ACCIDENT
     Dosage: 8MG ONCE PO Q 8 HOUR
     Route: 048
     Dates: start: 20071226
  2. ZOFRAN [Suspect]
     Indication: NAUSEA
     Dosage: 8MG ONCE PO Q 8 HOUR
     Route: 048
     Dates: start: 20071226

REACTIONS (1)
  - NO ADVERSE EVENT [None]
